FAERS Safety Report 18202529 (Version 2)
Quarter: 2020Q3

REPORT INFORMATION
  Report Type: Spontaneous
  Country: CA (occurrence: CA)
  Receive Date: 20200827
  Receipt Date: 20200908
  Transmission Date: 20201103
  Serious: Yes (Hospitalization, Other)
  Sender: FDA-Public Use
  Company Number: CA-MYLANLABS-2020M1072998

PATIENT
  Age: 48 Year
  Sex: Female

DRUGS (1)
  1. EPIPEN [Suspect]
     Active Substance: EPINEPHRINE
     Indication: PRODUCT USED FOR UNKNOWN INDICATION
     Dosage: UNK
     Route: 030

REACTIONS (9)
  - Dyspnoea [Unknown]
  - Chest pain [Unknown]
  - Paraesthesia [Unknown]
  - Halo vision [Unknown]
  - Heart rate decreased [Unknown]
  - Tremor [Unknown]
  - Blood pressure decreased [Unknown]
  - Diplopia [Unknown]
  - Muscular weakness [Unknown]
